FAERS Safety Report 11205561 (Version 2)
Quarter: 2015Q2

REPORT INFORMATION
  Report Type: Spontaneous
  Country: CH (occurrence: CH)
  Receive Date: 20150622
  Receipt Date: 20150630
  Transmission Date: 20150821
  Serious: Yes (Other)
  Sender: FDA-Public Use
  Company Number: CH-PFIZER INC-2015206299

PATIENT
  Sex: Male
  Weight: 2.2 kg

DRUGS (4)
  1. PANTOPRAZOLE [Suspect]
     Active Substance: PANTOPRAZOLE SODIUM
     Dosage: UNK
     Route: 064
  2. MST CONTINUS [Suspect]
     Active Substance: MORPHINE SULFATE
     Dosage: 60 MG, 2X/DAY
     Route: 064
     Dates: start: 20150311
  3. ADALAT [Suspect]
     Active Substance: NIFEDIPINE
     Dosage: 20 MG, 2X/DAY
     Route: 064
     Dates: start: 20150203, end: 20150505
  4. PRIMPERAN [Suspect]
     Active Substance: METOCLOPRAMIDE HYDROCHLORIDE
     Dosage: 10 MG, 2X/DAY
     Route: 064
     Dates: start: 20140830

REACTIONS (3)
  - Neonatal respiratory distress syndrome [Recovered/Resolved]
  - Exposure during pregnancy [Unknown]
  - Premature baby [Unknown]

NARRATIVE: CASE EVENT DATE: 20150203
